FAERS Safety Report 8549730-0 (Version None)
Quarter: 2012Q3

REPORT INFORMATION
  Report Type: 
  Country: None (occurrence: None)
  Receive Date: 20120730
  Receipt Date: 20120724
  Transmission Date: 20120928
  Serious: Yes (Other)
  Sender: FDA-Public Use
  Company Number: US-009507513-2012SP022128

PATIENT

DRUGS (9)
  1. PEG-INTRON [Suspect]
     Indication: HEPATITIS C
     Dosage: 120 MG, QW
     Route: 058
     Dates: start: 20120116
  2. REBETOL [Suspect]
     Indication: HEPATIC CIRRHOSIS
  3. REBETOL [Suspect]
     Indication: HEPATITIS C
     Dosage: 600 MG, QD
     Route: 048
     Dates: start: 20120116
  4. PEG-INTRON [Suspect]
     Indication: HEPATIC CIRRHOSIS
  5. LASIX [Concomitant]
     Dosage: 20 MG, QD
     Route: 048
  6. VICTRELIS [Suspect]
     Indication: HEPATIC CIRRHOSIS
  7. PROCRIT [Concomitant]
     Dosage: 40000 UNITS QW
     Route: 058
  8. VICTRELIS [Suspect]
     Indication: HEPATITIS C
     Dosage: 800 MG, TID
     Route: 048
     Dates: start: 20120213
  9. LEVOTHYROXINE SODIUM [Concomitant]
     Dosage: 0.075 MICROGRAM QD
     Route: 048

REACTIONS (2)
  - HAEMOGLOBIN ABNORMAL [None]
  - THYROID DISORDER [None]
